FAERS Safety Report 21510352 (Version 3)
Quarter: 2024Q1

REPORT INFORMATION
  Report Type: Report from Study
  Country: US (occurrence: US)
  Receive Date: 20221026
  Receipt Date: 20240308
  Transmission Date: 20240410
  Serious: Yes (Hospitalization)
  Sender: FDA-Public Use
  Company Number: US-JAZZ-2022-US-029867

PATIENT
  Sex: Female

DRUGS (11)
  1. XYWAV [Suspect]
     Active Substance: CALCIUM OXYBATE\MAGNESIUM OXYBATE\POTASSIUM OXYBATE\SODIUM OXYBATE
     Indication: Narcolepsy
     Dosage: 6 GRAMS AT BEDTIME AND 4.5 GRAMS FOR HER SECOND DOSE
     Route: 048
  2. XYWAV [Suspect]
     Active Substance: CALCIUM OXYBATE\MAGNESIUM OXYBATE\POTASSIUM OXYBATE\SODIUM OXYBATE
     Indication: Cataplexy
     Dosage: 4.5 GRAM
  3. XYWAV [Suspect]
     Active Substance: CALCIUM OXYBATE\MAGNESIUM OXYBATE\POTASSIUM OXYBATE\SODIUM OXYBATE
     Indication: Somnolence
  4. ESTRADIOL;PREDNISONE;TESTOSTERONE [Concomitant]
     Indication: Product used for unknown indication
     Dosage: UNK
     Dates: start: 20180510
  5. NALTREXONE HYDROCHLORIDE [Concomitant]
     Active Substance: NALTREXONE HYDROCHLORIDE
     Indication: Product used for unknown indication
     Dosage: UNK
     Dates: start: 20181126
  6. ARMOUR THYROID [Concomitant]
     Active Substance: THYROID, PORCINE
     Indication: Product used for unknown indication
     Dosage: UNK UNK, QD
     Dates: start: 20181201
  7. MAGNESIUM GLUCEPTATE [Concomitant]
     Active Substance: MAGNESIUM GLUCEPTATE
     Indication: Product used for unknown indication
     Dosage: UNK UNK, QD
     Dates: start: 20181201
  8. LEVOTHYROXINE [Concomitant]
     Active Substance: LEVOTHYROXINE\LEVOTHYROXINE SODIUM
     Indication: Product used for unknown indication
     Dosage: UNK
     Dates: start: 20200101
  9. 7-KETO-DEHYDROEPIANDROSTERONE [Concomitant]
     Active Substance: 7-KETO-DEHYDROEPIANDROSTERONE
     Indication: Product used for unknown indication
     Dosage: UNK
     Dates: start: 20210812
  10. PROGESTERONE [Concomitant]
     Active Substance: PROGESTERONE
     Indication: Product used for unknown indication
     Dosage: UNK
     Dates: start: 20210903
  11. PREGNENOLONE [Concomitant]
     Active Substance: PREGNENOLONE
     Indication: Product used for unknown indication
     Dosage: UNK
     Dates: start: 20210910

REACTIONS (5)
  - Cholelithiasis [Unknown]
  - Thinking abnormal [Unknown]
  - Product preparation error [Unknown]
  - Product dose omission issue [Unknown]
  - Prescribed overdose [Unknown]
